FAERS Safety Report 20746090 (Version 1)
Quarter: 2022Q2

REPORT INFORMATION
  Report Type: Spontaneous
  Country: US (occurrence: US)
  Receive Date: 20220425
  Receipt Date: 20220425
  Transmission Date: 20220721
  Serious: No
  Sender: FDA-Public Use
  Company Number: US-TAKEDA-2022TUS027223

PATIENT
  Age: 67 Year

DRUGS (1)
  1. LIVTENCITY [Suspect]
     Active Substance: MARIBAVIR
     Indication: Cytomegalovirus infection
     Dosage: 160 MILLIGRAM, QID
     Route: 065

REACTIONS (2)
  - Cytomegalovirus test positive [Unknown]
  - Drug ineffective [Unknown]
